FAERS Safety Report 5167317-7 (Version None)
Quarter: 2006Q4

REPORT INFORMATION
  Report Type: 
  Country: None (occurrence: None)
  Receive Date: 20061129
  Receipt Date: 20061115
  Transmission Date: 20070319
  Serious: Yes (Death)
  Sender: FDA-Public Use
  Company Number: 232670

PATIENT
  Age: 65 Year
  Sex: Female

DRUGS (11)
  1. METALYSE [Suspect]
     Indication: ACUTE MYOCARDIAL INFARCTION
     Dosage: 6000 IU, SINGLE, INTRAVENOUS
     Route: 042
     Dates: start: 20050810, end: 20050810
  2. ASPIRIN [Concomitant]
  3. HEPARIN [Concomitant]
  4. CLOPIDOGREL [Concomitant]
  5. BETA BLOCKERS (BETA BLOCKERS NOS) [Concomitant]
  6. NITRATES NOS (NITRATES NOS) [Concomitant]
  7. DIURETICS (DIURETISC) [Concomitant]
  8. ACE-INHIBITOR (ANGIOTENSIN-CONVERTING ENZYME INHIBITORS) [Concomitant]
  9. STATINS NOS (STATINS NOS) [Concomitant]
  10. GLYCEROL (GLYCERIN) [Concomitant]
  11. ANTIPLATELETS (ANTIPLATELET AGENT NOS) [Concomitant]

REACTIONS (2)
  - ANGINA PECTORIS [None]
  - SUDDEN DEATH [None]
